FAERS Safety Report 13212352 (Version 1)
Quarter: 2017Q1

REPORT INFORMATION
  Report Type: Spontaneous
  Country: US (occurrence: US)
  Receive Date: 20170210
  Receipt Date: 20170210
  Transmission Date: 20170428
  Serious: Yes (Life-Threatening, Hospitalization)
  Sender: FDA-Public Use
  Company Number: US-PERRIGO-17US001218

PATIENT
  Age: 6 Day
  Sex: Male
  Weight: 3.7 kg

DRUGS (1)
  1. HYDROMORPHONE HYDROCHLORIDE. [Suspect]
     Active Substance: HYDROMORPHONE HYDROCHLORIDE
     Indication: PROCEDURAL PAIN
     Dosage: UNK
     Route: 063

REACTIONS (8)
  - Urine output decreased [Unknown]
  - Somnolence [Unknown]
  - Neonatal hypoxia [Recovering/Resolving]
  - Toxicity to various agents [Recovering/Resolving]
  - Exposure during breast feeding [Unknown]
  - Bradycardia [Recovering/Resolving]
  - Apnoea [Recovered/Resolved]
  - Lethargy [Unknown]
